FAERS Safety Report 24120056 (Version 1)
Quarter: 2024Q3

REPORT INFORMATION
  Report Type: Spontaneous
  Country: CN (occurrence: CN)
  Receive Date: 20240722
  Receipt Date: 20240722
  Transmission Date: 20241017
  Serious: Yes (Other)
  Sender: PFIZER
  Company Number: CN-PFIZER INC-PV202400093981

PATIENT
  Age: 27 Year
  Sex: Male
  Weight: 74.6 kg

DRUGS (2)
  1. CYTARABINE [Suspect]
     Active Substance: CYTARABINE
     Indication: Acute leukaemia
     Dosage: 0.18 G, 1X/DAY
     Route: 042
     Dates: start: 20240629, end: 20240705
  2. SODIUM CHLORIDE [Concomitant]
     Active Substance: SODIUM CHLORIDE
     Indication: Vehicle solution use
     Dosage: 500 ML, 1X/DAY
     Route: 042
     Dates: start: 20240629, end: 20240705

REACTIONS (4)
  - Rash [Recovering/Resolving]
  - Rash erythematous [Recovering/Resolving]
  - Petechiae [Recovering/Resolving]
  - Pruritus [Recovering/Resolving]

NARRATIVE: CASE EVENT DATE: 20240703
